FAERS Safety Report 25697919 (Version 1)
Quarter: 2025Q3

REPORT INFORMATION
  Report Type: Spontaneous
  Country: JP (occurrence: JP)
  Receive Date: 20250819
  Receipt Date: 20250819
  Transmission Date: 20251020
  Serious: Yes (Death, Hospitalization, Other)
  Sender: ALEXION PHARMACEUTICALS
  Company Number: JP-ASTRAZENECA-220060954_013120_P_1

PATIENT
  Age: 68 Year
  Sex: Male
  Weight: 57 kg

DRUGS (1)
  1. IMFINZI [Suspect]
     Active Substance: DURVALUMAB
     Indication: Non-small cell lung cancer
     Dosage: 10 MILLIGRAM/KILOGRAM, Q2W
     Dates: start: 20200109, end: 20200206

REACTIONS (5)
  - Radiation pneumonitis [Unknown]
  - Interstitial lung disease [Unknown]
  - Organising pneumonia [Unknown]
  - Pleural effusion [Unknown]
  - Non-small cell lung cancer recurrent [Fatal]

NARRATIVE: CASE EVENT DATE: 20200305
